FAERS Safety Report 7002779-1 (Version None)
Quarter: 2010Q3

REPORT INFORMATION
  Report Type: 
  Country: None (occurrence: None)
  Receive Date: 20100920
  Receipt Date: 20100911
  Transmission Date: 20110219
  Serious: Yes (Death, Other)
  Sender: FDA-Public Use
  Company Number: GR-BAXTER-2010BH023597

PATIENT
  Age: 49 Year
  Sex: Male

DRUGS (2)
  1. CYCLOPHOSPHAMIDE [Suspect]
     Indication: VASCULITIS
     Route: 048
  2. PREDNISONE [Suspect]
     Indication: VASCULITIS
     Route: 065

REACTIONS (7)
  - ASTHENIA [None]
  - CARDIAC ARREST [None]
  - DYSPNOEA [None]
  - HAEMOPTYSIS [None]
  - HYPOTENSION [None]
  - PYREXIA [None]
  - STRONGYLOIDIASIS [None]
